FAERS Safety Report 12860119 (Version 1)
Quarter: 2016Q4

REPORT INFORMATION
  Report Type: Spontaneous
  Country: GB (occurrence: GB)
  Receive Date: 20161019
  Receipt Date: 20161019
  Transmission Date: 20170207
  Serious: Yes (Life-Threatening)
  Sender: FDA-Public Use
  Company Number: GB-ROCHE-1843029

PATIENT
  Age: 72 Year
  Sex: Female
  Weight: 73.1 kg

DRUGS (1)
  1. PERTUZUMAB [Suspect]
     Active Substance: PERTUZUMAB
     Indication: BREAST CANCER
     Route: 042
     Dates: end: 20160927

REACTIONS (5)
  - Feeling hot [Recovered/Resolved]
  - Heart rate decreased [Recovered/Resolved]
  - Syncope [Recovered/Resolved]
  - Back pain [Recovered/Resolved]
  - Blood pressure decreased [Recovered/Resolved]

NARRATIVE: CASE EVENT DATE: 20160906
